FAERS Safety Report 5518900-8 (Version None)
Quarter: 2007Q4

REPORT INFORMATION
  Report Type: 
  Country: None (occurrence: None)
  Receive Date: 20071114
  Receipt Date: 20071102
  Transmission Date: 20080405
  Serious: Yes (Other)
  Sender: FDA-Public Use
  Company Number: 2007SP022295

PATIENT
  Age: 48 Year
  Sex: Female

DRUGS (6)
  1. PEG-INTRON [Suspect]
     Indication: HEPATITIS C
     Dosage: SC
     Route: 058
     Dates: start: 20070405
  2. RIBAVIRIN [Suspect]
     Indication: HEPATITIS C
     Dosage: PO
     Route: 048
     Dates: start: 20070405
  3. PROCRIT [Suspect]
     Indication: ANAEMIA
     Dates: start: 20070401
  4. INSULIN PUMP [Suspect]
     Dates: start: 20071001
  5. LIPITOR [Concomitant]
  6. SYNTHROID [Concomitant]

REACTIONS (10)
  - ALOPECIA [None]
  - ANAEMIA [None]
  - ANXIETY [None]
  - ASTHENIA [None]
  - BLOOD GLUCOSE INCREASED [None]
  - CONTUSION [None]
  - DEVICE INEFFECTIVE [None]
  - DYSPNOEA [None]
  - KETOACIDOSIS [None]
  - MEDICAL DEVICE COMPLICATION [None]
